FAERS Safety Report 6336818-8 (Version None)
Quarter: 2009Q3

REPORT INFORMATION
  Report Type: 
  Country: None (occurrence: None)
  Receive Date: 20090831
  Receipt Date: 20090831
  Transmission Date: 20100115
  Serious: Yes (Other)
  Sender: FDA-Public Use
  Company Number: None

PATIENT
  Age: 74 Year
  Sex: Female
  Weight: 64.8644 kg

DRUGS (2)
  1. AREDIA [Suspect]
     Indication: FRACTURE
     Dosage: 30 MG ONCE A MONTH IV DRIP
     Route: 041
     Dates: start: 20090201, end: 20090501
  2. AREDIA [Suspect]
     Indication: PROPHYLAXIS
     Dosage: 30 MG ONCE A MONTH IV DRIP
     Route: 041
     Dates: start: 20090201, end: 20090501

REACTIONS (2)
  - DENTAL CARIES [None]
  - DISCOMFORT [None]
